FAERS Safety Report 8007399-8 (Version None)
Quarter: 2011Q4

REPORT INFORMATION
  Report Type: 
  Country: None (occurrence: None)
  Receive Date: 20111227
  Receipt Date: 20111222
  Transmission Date: 20120403
  Serious: Yes (Disabling)
  Sender: FDA-Public Use
  Company Number: AU-PFIZER INC-2011268502

PATIENT
  Sex: Female
  Weight: 59 kg

DRUGS (2)
  1. ATACAND [Concomitant]
     Indication: BLOOD PRESSURE INCREASED
     Dosage: 8MG, DAILY
     Route: 048
     Dates: start: 20021001
  2. LIPITOR [Suspect]
     Indication: HYPERCHOLESTEROLAEMIA
     Dosage: 40MG, DAILY
     Route: 048
     Dates: start: 20021001, end: 20090701

REACTIONS (2)
  - ANOSMIA [None]
  - AGEUSIA [None]
